FAERS Safety Report 16348362 (Version 1)
Quarter: 2019Q2

REPORT INFORMATION
  Report Type: Spontaneous
  Country: AU (occurrence: AU)
  Receive Date: 20190523
  Receipt Date: 20190523
  Transmission Date: 20190711
  Serious: Yes (Hospitalization)
  Sender: FDA-Public Use
  Company Number: AU-ENDO PHARMACEUTICALS INC-2019-104921

PATIENT
  Age: 40 Year
  Sex: Female

DRUGS (1)
  1. BACLOFEN. [Suspect]
     Active Substance: BACLOFEN
     Indication: ALCOHOL USE DISORDER
     Dosage: UNKNOWN
     Route: 065

REACTIONS (5)
  - Intentional overdose [Unknown]
  - Off label use [Unknown]
  - Suicide attempt [Unknown]
  - Loss of consciousness [Unknown]
  - Myoclonus [Unknown]
